FAERS Safety Report 7326605-6 (Version None)
Quarter: 2011Q1

REPORT INFORMATION
  Report Type: 
  Country: None (occurrence: None)
  Receive Date: 20110302
  Receipt Date: 20110215
  Transmission Date: 20110831
  Serious: Yes (Disabling)
  Sender: FDA-Public Use
  Company Number: GB-ASTRAZENECA-2011SE06918

PATIENT
  Age: 72 Year
  Sex: Male
  Weight: 91.8 kg

DRUGS (9)
  1. FINASTERIDE [Suspect]
     Indication: PROSTATIC DISORDER
     Route: 048
  2. LISINOPRIL [Concomitant]
     Indication: HYPERTENSION
     Route: 048
  3. LISINOPRIL [Concomitant]
     Route: 048
  4. ALFUZOSIN [Concomitant]
     Indication: PROSTATIC DISORDER
     Route: 048
  5. AMLODIPINE [Suspect]
     Indication: HYPERTENSION
     Route: 048
  6. ATORVASTATIN CALCIUM [Concomitant]
     Indication: HYPERCHOLESTEROLAEMIA
     Route: 048
  7. BISOPROLOL FUMARATE [Concomitant]
     Indication: HYPERTENSION
     Route: 048
  8. ASPIRIN [Concomitant]
  9. FELODIPINE [Suspect]
     Route: 048
     Dates: start: 20101219, end: 20110201

REACTIONS (3)
  - MYALGIA [None]
  - ARTHRALGIA [None]
  - DRUG PRESCRIBING ERROR [None]
